FAERS Safety Report 7538372-1 (Version None)
Quarter: 2011Q2

REPORT INFORMATION
  Report Type: 
  Country: None (occurrence: None)
  Receive Date: 20110609
  Receipt Date: 20110606
  Transmission Date: 20111010
  Serious: Yes (Other)
  Sender: FDA-Public Use
  Company Number: US-PFIZER INC-2011105400

PATIENT
  Sex: Female
  Weight: 76.2 kg

DRUGS (1)
  1. EFFEXOR XR [Suspect]
     Indication: DEPRESSION
     Dosage: 75 MG, 1X/DAY
     Route: 048

REACTIONS (4)
  - SLEEP DISORDER [None]
  - FIBROMYALGIA [None]
  - FEELING ABNORMAL [None]
  - OSTEOARTHRITIS [None]
